FAERS Safety Report 4474953-X (Version None)
Quarter: 2004Q3

REPORT INFORMATION
  Report Type: 
  Country: None (occurrence: None)
  Receive Date: 20040923
  Receipt Date: 20040824
  Transmission Date: 20050211
  Serious: Yes (Hospitalization, Other)
  Sender: FDA-Public Use
  Company Number: USA040876300

PATIENT
  Age: 74 Year
  Sex: Female
  Weight: 61 kg

DRUGS (6)
  1. FORTEO [Suspect]
     Indication: OSTEOPOROSIS
     Dosage: 20 UG/1 DAY
     Dates: start: 20040714, end: 20040731
  2. SYNTHROID [Concomitant]
  3. MIACALCIN [Concomitant]
  4. NORVASC [Concomitant]
  5. ULTRACET [Concomitant]
  6. CALTRATE + D [Concomitant]

REACTIONS (6)
  - ASTHENIA [None]
  - EYE REDNESS [None]
  - EYE SWELLING [None]
  - LACRIMATION INCREASED [None]
  - PNEUMONIA [None]
  - RASH [None]
